FAERS Safety Report 19457378 (Version 1)
Quarter: 2021Q2

REPORT INFORMATION
  Report Type: Spontaneous
  Country: US (occurrence: US)
  Receive Date: 20210624
  Receipt Date: 20210624
  Transmission Date: 20210717
  Serious: Yes (Hospitalization, Other)
  Sender: FDA-Public Use
  Company Number: US-GLAXOSMITHKLINE-US2021132559

PATIENT
  Age: 72 Year
  Sex: Male
  Weight: 93.44 kg

DRUGS (1)
  1. LAMICTAL [Suspect]
     Active Substance: LAMOTRIGINE
     Indication: SEIZURE
     Dosage: TAKE ONE AND ONE?HALF TABLETS BY MOUTH IN THE MORNING +ONE TABLET BY MOUTH AT NIGHT
     Dates: start: 2011

REACTIONS (5)
  - Deafness [Not Recovered/Not Resolved]
  - Incorrect dose administered [Unknown]
  - Aspiration [Unknown]
  - Chest discomfort [Unknown]
  - Gastrooesophageal reflux disease [Unknown]

NARRATIVE: CASE EVENT DATE: 202004
